FAERS Safety Report 18508055 (Version 1)
Quarter: 2020Q4

REPORT INFORMATION
  Report Type: Spontaneous
  Country: US (occurrence: US)
  Receive Date: 20201116
  Receipt Date: 20201116
  Transmission Date: 20210114
  Serious: Yes (Hospitalization, Other)
  Sender: FDA-Public Use
  Company Number: US-PFIZER INC-2020446793

PATIENT
  Age: 69 Year
  Sex: Female
  Weight: 92.53 kg

DRUGS (4)
  1. KEYTRUDA [Suspect]
     Active Substance: PEMBROLIZUMAB
     Indication: RENAL CANCER STAGE IV
     Dosage: 200 MG, EVERY 3 WEEKS (200MG INFUSION EVERY 3 WEEKS)
     Dates: start: 20200818, end: 20201016
  2. HYDROCHLOROTHIAZIDE. [Concomitant]
     Active Substance: HYDROCHLOROTHIAZIDE
     Indication: HYPERTENSION
     Dosage: 12.5 MG, DAILY
     Dates: start: 200103
  3. INLYTA [Suspect]
     Active Substance: AXITINIB
     Indication: RENAL CANCER STAGE IV
     Dosage: 5 MG, 2X/DAY
     Dates: start: 20200910, end: 20201024
  4. BENAZEPRIL [Concomitant]
     Active Substance: BENAZEPRIL HYDROCHLORIDE
     Indication: HYPERTENSION
     Dosage: 20 MG, DAILY
     Dates: start: 200103

REACTIONS (2)
  - Colitis [Recovering/Resolving]
  - Intestinal perforation [Unknown]

NARRATIVE: CASE EVENT DATE: 20200917
